FAERS Safety Report 6613961-7 (Version None)
Quarter: 2010Q1

REPORT INFORMATION
  Report Type: 
  Country: None (occurrence: None)
  Receive Date: 20100225
  Receipt Date: 20100210
  Transmission Date: 20100710
  Serious: Yes (Life-Threatening, Hospitalization)
  Sender: FDA-Public Use
  Company Number: 2008001176

PATIENT
  Age: 56 Year
  Sex: Male
  Weight: 86 kg

DRUGS (13)
  1. ERLOTINIB (ERLOTINIB) (TABLET) (ERLOTINIB) [Suspect]
     Indication: LUNG ADENOCARCINOMA
     Dosage: (150 MG,QD), ORAL
     Route: 048
     Dates: start: 20080124, end: 20080429
  2. WARFARIN SODIUM [Suspect]
     Indication: LUNG ADENOCARCINOMA
     Dosage: ORAL
     Route: 048
     Dates: start: 20080412, end: 20080414
  3. LIPITOR [Concomitant]
  4. DILTIAZEM HYDROCHLORIDE [Concomitant]
  5. NORVASC [Concomitant]
  6. GASTER D [Concomitant]
  7. ASPIRIN [Concomitant]
  8. LENDORM [Concomitant]
  9. NAIXAN (NAPROXEN SODIUM) [Concomitant]
  10. MS CONTIN [Concomitant]
  11. MAGNESIUM OXIDE (MAGNESIUM OXIDE) [Concomitant]
  12. METHYCDEAL (MECOSALAMIN) [Concomitant]
  13. LOPERAMIDE HCL [Concomitant]

REACTIONS (5)
  - CHRONIC RESPIRATORY FAILURE [None]
  - CONDITION AGGRAVATED [None]
  - LIVER DISORDER [None]
  - PULMONARY EMBOLISM [None]
  - PULMONARY HYPERTENSION [None]
